FAERS Safety Report 4485563-2 (Version None)
Quarter: 2004Q4

REPORT INFORMATION
  Report Type: 
  Country: None (occurrence: None)
  Receive Date: 20041021
  Receipt Date: 20041006
  Transmission Date: 20050328
  Serious: Yes (Death)
  Sender: FDA-Public Use
  Company Number: 2004AL000560

PATIENT
  Age: 62 Year

DRUGS (1)
  1. KADIAN (MORPHINE SULFATE SUSTAINED RELEASE) CAPSULES, 20MG. 30MG. 50MG [Suspect]
     Dosage: PO
     Route: 048

REACTIONS (2)
  - INTENTIONAL MISUSE [None]
  - OVERDOSE [None]
